FAERS Safety Report 20564802 (Version 1)
Quarter: 2022Q1

REPORT INFORMATION
  Report Type: Spontaneous
  Country: US (occurrence: US)
  Receive Date: 20220308
  Receipt Date: 20220308
  Transmission Date: 20220423
  Serious: No
  Sender: FDA-Public Use
  Company Number: US-ALLERGAN-2117454US

PATIENT
  Sex: Female

DRUGS (2)
  1. ESTRACE [Suspect]
     Active Substance: ESTRADIOL
     Indication: Product used for unknown indication
     Dosage: UNK, BI-WEEKLY
  2. ESTRACE [Suspect]
     Active Substance: ESTRADIOL
     Dosage: 1 G 3 X WEEK

REACTIONS (3)
  - Discomfort [Unknown]
  - Pain [Unknown]
  - Product packaging quantity issue [Unknown]
